FAERS Safety Report 5015369-7 (Version None)
Quarter: 2006Q2

REPORT INFORMATION
  Report Type: 
  Country: None (occurrence: None)
  Receive Date: 20060601
  Receipt Date: 20060519
  Transmission Date: 20061013
  Serious: Yes (Hospitalization, Other)
  Sender: FDA-Public Use
  Company Number: PHBS2006BR07718

PATIENT
  Age: 70 Year
  Sex: Female
  Weight: 90 kg

DRUGS (5)
  1. DILTIAZEM [Concomitant]
  2. GESTRIL [Concomitant]
  3. PROPYLTHIOURACIL [Concomitant]
  4. LIPITOR [Concomitant]
  5. FORASEQ [Suspect]
     Dosage: 12 FORM - 200 BUDE UG/DAY
     Dates: start: 20050101

REACTIONS (7)
  - EAR PAIN [None]
  - GALLBLADDER POLYP [None]
  - LARYNGEAL ULCERATION [None]
  - ODYNOPHAGIA [None]
  - PHARYNGOLARYNGEAL PAIN [None]
  - POLYPECTOMY [None]
  - SINUS HEADACHE [None]
